FAERS Safety Report 10076758 (Version 1)
Quarter: 2014Q2

REPORT INFORMATION
  Report Type: Report from Study
  Country: CA (occurrence: CA)
  Receive Date: 20140414
  Receipt Date: 20140414
  Transmission Date: 20141212
  Serious: Yes (Hospitalization)
  Sender: FDA-Public Use
  Company Number: CA-BRISTOL-MYERS SQUIBB COMPANY-20611232

PATIENT
  Age: 76 Year
  Sex: Male

DRUGS (10)
  1. ORENCIA [Suspect]
     Indication: RHEUMATOID ARTHRITIS
     Dosage: 1 DF= 750 UNITS NOS
     Dates: start: 20110427
  2. PULMICORT [Concomitant]
     Dosage: 2 PUFFS
     Route: 055
  3. ATROVENT [Concomitant]
     Dosage: 2 PUFFS
     Route: 055
  4. SALBUTAMOL [Concomitant]
     Dosage: 1 PUFF
     Route: 055
  5. GOLD SODIUM THIOMALATE [Concomitant]
     Dosage: 1 DF= 50 MG/ML
  6. VITAMIN D [Concomitant]
  7. CALCIUM [Concomitant]
  8. MULTIVITAMINS [Concomitant]
  9. VITAMIN B [Concomitant]
  10. VITAMIN C [Concomitant]

REACTIONS (1)
  - Fall [Unknown]
